FAERS Safety Report 21613442 (Version 1)
Quarter: 2022Q4

REPORT INFORMATION
  Report Type: Spontaneous
  Country: US (occurrence: None)
  Receive Date: 20221118
  Receipt Date: 20221118
  Transmission Date: 20230113
  Serious: Yes (Other)
  Sender: FDA-Public Use
  Company Number: US-ROCHE-3217898

PATIENT
  Age: 75 Year
  Weight: 68 kg

DRUGS (1)
  1. ALECENSA [Suspect]
     Active Substance: ALECTINIB HYDROCHLORIDE
     Indication: Product used for unknown indication
     Route: 065

REACTIONS (5)
  - Anaemia [Unknown]
  - Bradycardia [Unknown]
  - Fatigue [Unknown]
  - Back pain [Unknown]
  - Somnolence [Unknown]
